FAERS Safety Report 10004588 (Version 1)
Quarter: 2014Q1

REPORT INFORMATION
  Report Type: Spontaneous
  Country: US (occurrence: US)
  Receive Date: 20140312
  Receipt Date: 20140312
  Transmission Date: 20141002
  Serious: Yes (Other)
  Sender: FDA-Public Use
  Company Number: US-PFIZER INC-2014068839

PATIENT
  Sex: 0

DRUGS (2)
  1. LYRICA [Suspect]
     Dosage: 300 MG, DAILY
  2. LYRICA [Suspect]
     Dosage: 100 MG, DAILY

REACTIONS (1)
  - Macular fibrosis [Unknown]
